FAERS Safety Report 4836325-5 (Version None)
Quarter: 2005Q4

REPORT INFORMATION
  Report Type: 
  Country: None (occurrence: None)
  Receive Date: 20051121
  Receipt Date: 20051121
  Transmission Date: 20060501
  Serious: Yes (Life-Threatening, Hospitalization)
  Sender: FDA-Public Use
  Company Number: None

PATIENT
  Age: 18 Year
  Sex: Male
  Weight: 61.2356 kg

DRUGS (2)
  1. ACCUTANE [Suspect]
     Indication: ACNE
     Dosage: 60MG    1X DAY   PO
     Route: 048
     Dates: start: 20010110, end: 20010610
  2. ACCUTANE [Suspect]
     Indication: ACNE
     Dosage: 60MG    1X DAY   PO
     Route: 048
     Dates: start: 20011016, end: 20020125

REACTIONS (4)
  - ACNE [None]
  - CONDITION AGGRAVATED [None]
  - CROHN'S DISEASE [None]
  - IRRITABLE BOWEL SYNDROME [None]
